FAERS Safety Report 6998611-2 (Version None)
Quarter: 2010Q3

REPORT INFORMATION
  Report Type: 
  Country: None (occurrence: None)
  Receive Date: 20100920
  Receipt Date: 20091020
  Transmission Date: 20110219
  Serious: Yes (Other)
  Sender: FDA-Public Use
  Company Number: US-ASTRAZENECA-2008UW00310

PATIENT
  Age: 20456 Day
  Sex: Female
  Weight: 81.6 kg

DRUGS (12)
  1. SEROQUEL [Suspect]
     Indication: SLEEP DISORDER
     Route: 048
     Dates: start: 20001201, end: 20010101
  2. SEROQUEL [Suspect]
     Indication: POST-TRAUMATIC STRESS DISORDER
     Route: 048
     Dates: start: 20001201, end: 20010101
  3. SEROQUEL [Suspect]
     Dosage: 50-600 MG
     Route: 048
     Dates: start: 20001205, end: 20041001
  4. SEROQUEL [Suspect]
     Dosage: 50-600 MG
     Route: 048
     Dates: start: 20001205, end: 20041001
  5. RISPERDAL [Suspect]
     Indication: POST-TRAUMATIC STRESS DISORDER
  6. ZYPREXA [Suspect]
     Indication: POST-TRAUMATIC STRESS DISORDER
     Dates: end: 20001001
  7. VICODIN [Concomitant]
     Dates: start: 20070510
  8. AVANDIA [Concomitant]
     Route: 048
     Dates: start: 20030804
  9. GLUCOPHAGE [Concomitant]
     Route: 048
     Dates: start: 20030804
  10. ABILIFY [Concomitant]
     Dates: start: 20070101
  11. CLOZARIL [Concomitant]
  12. HALDOL [Concomitant]

REACTIONS (3)
  - DIABETIC COMA [None]
  - DIABETIC KETOACIDOSIS [None]
  - TYPE 2 DIABETES MELLITUS [None]
